FAERS Safety Report 5397807-3 (Version None)
Quarter: 2007Q3

REPORT INFORMATION
  Report Type: 
  Country: None (occurrence: None)
  Receive Date: 20070723
  Receipt Date: 20070723
  Transmission Date: 20080115
  Serious: Yes (Life-Threatening)
  Sender: FDA-Public Use
  Company Number: None

PATIENT
  Age: 46 Year
  Sex: Female

DRUGS (5)
  1. FERRLECIT [Suspect]
     Indication: IRON DEFICIENCY ANAEMIA
     Dosage: 250 MG ONCE IV
     Route: 042
     Dates: start: 20060412, end: 20060412
  2. ALBUTEROL [Concomitant]
  3. ADVAIR DISKUS 100/50 [Concomitant]
  4. FERROUS SULFATE [Concomitant]
  5. LOTREL 5/25 [Concomitant]

REACTIONS (1)
  - ANAPHYLACTIC REACTION [None]
